FAERS Safety Report 15407678 (Version 1)
Quarter: 2018Q3

REPORT INFORMATION
  Report Type: Spontaneous
  Country: DE (occurrence: DE)
  Receive Date: 20180920
  Receipt Date: 20180920
  Transmission Date: 20181010
  Serious: Yes (Other)
  Sender: FDA-Public Use
  Company Number: DE-PFIZER INC-2018373791

PATIENT
  Age: 61 Year
  Sex: Female

DRUGS (1)
  1. CHAMPIX [Suspect]
     Active Substance: VARENICLINE TARTRATE
     Dosage: 0.5 MG, UNK

REACTIONS (6)
  - Vomiting [Unknown]
  - Urticaria [Unknown]
  - Postmenopausal haemorrhage [Unknown]
  - Seizure [Unknown]
  - Eye inflammation [Unknown]
  - Tachycardia [Unknown]
